FAERS Safety Report 7611145-7 (Version None)
Quarter: 2011Q3

REPORT INFORMATION
  Report Type: 
  Country: None (occurrence: None)
  Receive Date: 20110715
  Receipt Date: 20110712
  Transmission Date: 20111222
  Serious: Yes (Other)
  Sender: FDA-Public Use
  Company Number: US-PFIZER INC-2011096003

PATIENT
  Sex: Female
  Weight: 68.027 kg

DRUGS (6)
  1. LYRICA [Concomitant]
     Indication: FIBROMYALGIA
     Dosage: 150 MG, 1X/DAY
     Route: 048
     Dates: start: 20080521, end: 20100524
  2. METHOTREXATE [Concomitant]
     Indication: FIBROMYALGIA
     Dosage: 25 MG/ML, WEEKLY
     Route: 058
  3. MEDROL [Suspect]
     Dosage: 4 MG, 4 PILLS EACH MORNING
     Dates: start: 20100115, end: 20100121
  4. PREDNISONE [Suspect]
     Dosage: 10 MG, 1X/DAY
     Route: 048
  5. PLAQUENIL [Concomitant]
     Indication: RHEUMATOID ARTHRITIS
     Dosage: 200 MG 2X/DAY
  6. GABAPENTIN [Concomitant]
     Indication: PAIN
     Dosage: 100 MG, 3X/DAY

REACTIONS (1)
  - VISION BLURRED [None]
